FAERS Safety Report 20744857 (Version 1)
Quarter: 2022Q2

REPORT INFORMATION
  Report Type: Spontaneous
  Country: US (occurrence: None)
  Receive Date: 20220422
  Receipt Date: 20220422
  Transmission Date: 20220721
  Serious: Yes (Disabling)
  Sender: FDA-Public Use
  Company Number: None

PATIENT
  Age: 52 Year
  Sex: Male
  Weight: 85.5 kg

DRUGS (8)
  1. EMGALITY [Suspect]
     Active Substance: GALCANEZUMAB-GNLM
     Indication: Migraine
     Dosage: FREQUENCY : MONTHLY;?
     Route: 058
     Dates: start: 20220308, end: 20220414
  2. ESCITALOPRAM OXALATE [Concomitant]
     Active Substance: ESCITALOPRAM OXALATE
  3. LOSARTAN [Concomitant]
     Active Substance: LOSARTAN
  4. PERCOCET [Concomitant]
     Active Substance: ACETAMINOPHEN\OXYCODONE HYDROCHLORIDE
  5. LOW-DOSE ASPIRIN [Concomitant]
     Active Substance: ASPIRIN
  6. Multivitamin for men [Concomitant]
  7. VITAMIN D [Concomitant]
     Active Substance: VITAMIN D NOS
  8. FISH OIL [Concomitant]
     Active Substance: FISH OIL

REACTIONS (7)
  - Sciatica [None]
  - Loss of personal independence in daily activities [None]
  - Quality of life decreased [None]
  - Gait disturbance [None]
  - Hypokinesia [None]
  - Gait disturbance [None]
  - Disability [None]

NARRATIVE: CASE EVENT DATE: 20220309
